FAERS Safety Report 8590113-5 (Version None)
Quarter: 2012Q3

REPORT INFORMATION
  Report Type: 
  Country: None (occurrence: None)
  Receive Date: 20120813
  Receipt Date: 19891030
  Transmission Date: 20120928
  Serious: Yes (Hospitalization)
  Sender: FDA-Public Use
  Company Number: US-ROCHE-1099933

PATIENT
  Age: 64 Year
  Sex: Male

DRUGS (1)
  1. ACTIVASE [Suspect]
     Indication: ACUTE MYOCARDIAL INFARCTION

REACTIONS (8)
  - VOMITING [None]
  - ARRHYTHMIA [None]
  - LETHARGY [None]
  - DYSARTHRIA [None]
  - HAEMATOMA [None]
  - NAUSEA [None]
  - SOMNOLENCE [None]
  - EXTRASYSTOLES [None]
